FAERS Safety Report 6674311-3 (Version None)
Quarter: 2010Q2

REPORT INFORMATION
  Report Type: 
  Country: None (occurrence: None)
  Receive Date: 20100409
  Receipt Date: 20100330
  Transmission Date: 20101027
  Serious: Yes (Hospitalization)
  Sender: FDA-Public Use
  Company Number: US-JNJFOC-20091202707

PATIENT
  Sex: Female
  Weight: 34.47 kg

DRUGS (10)
  1. PREZISTA [Suspect]
     Indication: HIV INFECTION
     Route: 048
  2. NORVIR [Concomitant]
     Indication: HIV INFECTION
  3. TRUVADA [Concomitant]
     Indication: HIV INFECTION
  4. ISENTRESS [Concomitant]
     Indication: HIV INFECTION
  5. FLUCONAZOLE [Concomitant]
  6. ZANTAC [Concomitant]
  7. MARINOL [Concomitant]
  8. ZITHROMAX [Concomitant]
  9. PROMETHAZINE [Concomitant]
  10. DAPSONE [Concomitant]

REACTIONS (4)
  - ABDOMINAL PAIN [None]
  - DEHYDRATION [None]
  - NAUSEA [None]
  - VOMITING [None]
